FAERS Safety Report 20058698 (Version 2)
Quarter: 2022Q2

REPORT INFORMATION
  Report Type: Spontaneous
  Country: US (occurrence: US)
  Receive Date: 20211111
  Receipt Date: 20220422
  Transmission Date: 20220721
  Serious: No
  Sender: FDA-Public Use
  Company Number: US-PFIZER INC-2021823003

PATIENT
  Age: 38 Year
  Sex: Female
  Weight: 72.57 kg

DRUGS (3)
  1. PRISTIQ EXTENDED-RELEASE [Suspect]
     Active Substance: DESVENLAFAXINE SUCCINATE
     Indication: Anxiety
     Dosage: 100 MG, 1X/DAY (100MG ER, ONCE A DAY)
  2. PRISTIQ EXTENDED-RELEASE [Suspect]
     Active Substance: DESVENLAFAXINE SUCCINATE
     Indication: Depression
  3. METOPROLOL [Concomitant]
     Active Substance: METOPROLOL
     Dosage: UNK

REACTIONS (5)
  - Anxiety [Unknown]
  - Headache [Not Recovered/Not Resolved]
  - Depressed mood [Unknown]
  - Withdrawal syndrome [Unknown]
  - Illness [Unknown]

NARRATIVE: CASE EVENT DATE: 20211111
